FAERS Safety Report 7205613-X (Version None)
Quarter: 2010Q4

REPORT INFORMATION
  Report Type: 
  Country: None (occurrence: None)
  Receive Date: 20101231
  Receipt Date: 20101215
  Transmission Date: 20110411
  Serious: No
  Sender: FDA-Public Use
  Company Number: US-PFIZER INC-US-WYE-H15584610

PATIENT
  Sex: Female

DRUGS (1)
  1. PANTOPRAZOLE [Suspect]
     Dosage: UNKNOWN
     Route: 065

REACTIONS (3)
  - BACK DISORDER [None]
  - DRUG INEFFECTIVE [None]
  - OSTEOPENIA [None]
